FAERS Safety Report 21392816 (Version 1)
Quarter: 2022Q3

REPORT INFORMATION
  Report Type: Spontaneous
  Country: IT (occurrence: IT)
  Receive Date: 20220929
  Receipt Date: 20220929
  Transmission Date: 20221027
  Serious: Yes (Life-Threatening, Hospitalization, Other)
  Sender: FDA-Public Use
  Company Number: None

PATIENT
  Age: 82 Year
  Sex: Female
  Weight: 60 kg

DRUGS (6)
  1. CASPOFUNGIN [Suspect]
     Active Substance: CASPOFUNGIN
     Indication: Product used for unknown indication
     Dosage: 50 MG/DAY IV
     Route: 042
     Dates: start: 20220824, end: 20220829
  2. TEICOPLANINA + MEROPENEM [Concomitant]
     Indication: Product used for unknown indication
     Dates: start: 20220819
  3. ELIQUIS [Concomitant]
     Active Substance: APIXABAN
     Indication: Pulmonary embolism
     Dates: start: 202205
  4. ELIQUIS [Concomitant]
     Active Substance: APIXABAN
  5. MEROPENEM VENUS PHARMA [Concomitant]
     Indication: Product used for unknown indication
  6. TARGOSID [Concomitant]
     Active Substance: TEICOPLANIN
     Indication: Product used for unknown indication

REACTIONS (3)
  - Eosinophilia [Recovering/Resolving]
  - Thrombocytopenia [Recovering/Resolving]
  - Platelet count decreased [Recovering/Resolving]

NARRATIVE: CASE EVENT DATE: 20220826
